FAERS Safety Report 5279541-3 (Version None)
Quarter: 2007Q1

REPORT INFORMATION
  Report Type: 
  Country: None (occurrence: None)
  Receive Date: 20070322
  Receipt Date: 20070315
  Transmission Date: 20070707
  Serious: Yes (Life-Threatening, Hospitalization)
  Sender: FDA-Public Use
  Company Number: 17-07

PATIENT
  Age: 70 Year
  Sex: Female

DRUGS (4)
  1. SODIUM IODIDE I 131 [Suspect]
     Indication: THYROID DISORDER
     Dosage: 3.7 GBQ
  2. PREDNISOLONE [Concomitant]
  3. HYDROCORTISONE [Concomitant]
  4. HISTAMINE H1 [Concomitant]

REACTIONS (5)
  - DYSPNOEA [None]
  - ERYTHEMA [None]
  - MUSCULOSKELETAL DISCOMFORT [None]
  - STRIDOR [None]
  - SWELLING [None]
